FAERS Safety Report 6835988-2 (Version None)
Quarter: 2010Q3

REPORT INFORMATION
  Report Type: 
  Country: None (occurrence: None)
  Receive Date: 20100713
  Receipt Date: 20100630
  Transmission Date: 20110219
  Serious: Yes (Other)
  Sender: FDA-Public Use
  Company Number: A0869556A

PATIENT
  Sex: Female

DRUGS (1)
  1. TYKERB [Suspect]
     Indication: PRODUCT USED FOR UNKNOWN INDICATION
     Dosage: 1250MGD PER DAY
     Route: 048
     Dates: start: 20100525

REACTIONS (7)
  - ABDOMINAL PAIN [None]
  - ABDOMINAL RIGIDITY [None]
  - DIARRHOEA [None]
  - DRY MOUTH [None]
  - DRY SKIN [None]
  - FREQUENT BOWEL MOVEMENTS [None]
  - NAUSEA [None]
